FAERS Safety Report 21192979 (Version 2)
Quarter: 2022Q3

REPORT INFORMATION
  Report Type: Spontaneous
  Country: CO (occurrence: CO)
  Receive Date: 20220810
  Receipt Date: 20220811
  Transmission Date: 20221026
  Serious: Yes (Life-Threatening, Hospitalization, Other)
  Sender: FDA-Public Use
  Company Number: CO-AMGEN-COLSP2022135660

PATIENT
  Sex: Male

DRUGS (1)
  1. BLINCYTO [Suspect]
     Active Substance: BLINATUMOMAB
     Indication: Acute lymphocytic leukaemia
     Dosage: UNK
     Route: 065

REACTIONS (6)
  - Multiple organ dysfunction syndrome [Unknown]
  - Amnesia [Unknown]
  - Nervous system disorder [Unknown]
  - Asthenia [Unknown]
  - Loss of consciousness [Unknown]
  - Asphyxia [Not Recovered/Not Resolved]
